FAERS Safety Report 4435821-2 (Version None)
Quarter: 2004Q3

REPORT INFORMATION
  Report Type: 
  Country: None (occurrence: None)
  Receive Date: 20040726
  Receipt Date: 20040419
  Transmission Date: 20050211
  Serious: Yes (Other)
  Sender: FDA-Public Use
  Company Number: USA030844668

PATIENT
  Sex: Female

DRUGS (1)
  1. FORTEO [Suspect]
     Dosage: 20 UG DAY

REACTIONS (10)
  - ARTHRALGIA [None]
  - BLOOD PRESSURE INCREASED [None]
  - CYSTITIS [None]
  - DYSPNOEA [None]
  - EYE DISORDER [None]
  - FEELING HOT [None]
  - FLUSHING [None]
  - HERNIA [None]
  - JOINT SWELLING [None]
  - PAIN IN EXTREMITY [None]
